FAERS Safety Report 11068752 (Version 1)
Quarter: 2015Q2

REPORT INFORMATION
  Report Type: Spontaneous
  Country: FR (occurrence: FR)
  Receive Date: 20150427
  Receipt Date: 20150427
  Transmission Date: 20150821
  Serious: Yes (Hospitalization, Other)
  Sender: FDA-Public Use
  Company Number: FR-PFIZER INC-2015139666

PATIENT
  Age: 58 Year
  Sex: Female

DRUGS (14)
  1. ZOPICLONE ARROW [Suspect]
     Active Substance: ZOPICLONE
     Dosage: 1 DF, 1X/DAY
     Route: 048
     Dates: start: 20150320, end: 20150330
  2. SPECIAFOLDINE [Concomitant]
     Active Substance: FOLIC ACID
     Dosage: (SPECIAFOLDINE 5) 2 DF, DAILY
  3. IMOVANE [Concomitant]
     Active Substance: ZOPICLONE
     Dosage: (IMOVANE 7.5) 1/2 DF, 1X/DAY
  4. ROCEPHINE [Concomitant]
     Active Substance: CEFTRIAXONE SODIUM
     Dosage: 1 G, DAILY (CONTINUE FOR 9 DAYS )
     Route: 058
     Dates: start: 20150401
  5. NOVONORM [Concomitant]
     Active Substance: REPAGLINIDE
     Indication: TYPE 2 DIABETES MELLITUS
     Dosage: 1 DF (0.5), 3X/DAY
  6. FLAGYL [Suspect]
     Active Substance: METRONIDAZOLE\METRONIDAZOLE HYDROCHLORIDE
     Indication: CHOLECYSTITIS
     Dosage: 500 MG, 3X/DAY
     Route: 048
     Dates: start: 20150324, end: 20150331
  7. CEFTRIAXONE PANPHARMA [Suspect]
     Active Substance: CEFTRIAXONE
     Indication: CHOLECYSTITIS
     Dosage: 1 G, 1X/DAY
     Route: 058
     Dates: start: 20150323, end: 20150331
  8. EUCREAS [Concomitant]
     Active Substance: METFORMIN HYDROCHLORIDE\VILDAGLIPTIN
     Indication: TYPE 2 DIABETES MELLITUS
     Dosage: UNK
  9. LYRICA [Suspect]
     Active Substance: PREGABALIN
     Dosage: 1 DF, 1X/DAY
     Route: 048
     Dates: start: 20150323, end: 20150331
  10. METFORMIN [Concomitant]
     Active Substance: METFORMIN HYDROCHLORIDE
     Indication: TYPE 2 DIABETES MELLITUS
     Dosage: 1 DF (850), 3X/DAY
  11. SMECTA [Concomitant]
     Active Substance: MONTMORILLONITE
     Indication: DIARRHOEA
     Dosage: UNK, AS NEEDED
  12. FLAGYL [Suspect]
     Active Substance: METRONIDAZOLE\METRONIDAZOLE HYDROCHLORIDE
     Dosage: 500 MG, 3X/DAY (TO CONTINUE FOR 9 DAYS)
     Route: 048
     Dates: start: 20150401
  13. INNOHEP [Concomitant]
     Active Substance: TINZAPARIN SODIUM
     Dosage: 14 000 UNITS I.E. 0.7 ML, 1X/DAY
  14. FENOFIBRATE. [Concomitant]
     Active Substance: FENOFIBRATE
     Indication: HYPERTRIGLYCERIDAEMIA
     Dosage: 1 DF (160), 1X/DAY

REACTIONS (6)
  - Dyskinesia [Recovered/Resolved]
  - Confusional state [Recovering/Resolving]
  - Disorientation [Not Recovered/Not Resolved]
  - Cerebellar syndrome [Recovering/Resolving]
  - Stereotypy [Recovered/Resolved]
  - Hallucination [Unknown]

NARRATIVE: CASE EVENT DATE: 20150329
